FAERS Safety Report 6773287-8 (Version None)
Quarter: 2010Q2

REPORT INFORMATION
  Report Type: 
  Country: None (occurrence: None)
  Receive Date: 20100614
  Receipt Date: 20100601
  Transmission Date: 20101027
  Serious: Yes (Hospitalization)
  Sender: FDA-Public Use
  Company Number: 7005240

PATIENT
  Age: 54 Year
  Sex: Female

DRUGS (1)
  1. SEROSTIM [Suspect]
     Indication: CACHEXIA
     Dosage: 4 MG, 1 IIN 1 D
     Dates: start: 20100401

REACTIONS (2)
  - BLINDNESS [None]
  - HERPES ZOSTER [None]
